FAERS Safety Report 14912000 (Version 1)
Quarter: 2018Q2

REPORT INFORMATION
  Report Type: Spontaneous
  Country: US (occurrence: US)
  Receive Date: 20180430
  Receipt Date: 20180430
  Transmission Date: 20180711
  Serious: Yes (Hospitalization)
  Sender: FDA-Public Use
  Company Number: None

PATIENT
  Age: 36 Year
  Sex: Female
  Weight: 72.57 kg

DRUGS (1)
  1. NEXPLANON [Suspect]
     Active Substance: ETONOGESTREL
     Dates: start: 20161217, end: 20171015

REACTIONS (4)
  - Pelvic congestion [None]
  - Pelvic pain [None]
  - Cholecystitis infective [None]
  - Impaired work ability [None]

NARRATIVE: CASE EVENT DATE: 20170523
